FAERS Safety Report 6326682-5 (Version None)
Quarter: 2009Q3

REPORT INFORMATION
  Report Type: 
  Country: None (occurrence: None)
  Receive Date: 20090818
  Receipt Date: 20090611
  Transmission Date: 20100115
  Serious: No
  Sender: FDA-Public Use
  Company Number: WAES 0906USA02045

PATIENT
  Age: 49 Year
  Sex: Female

DRUGS (3)
  1. JANUVIA [Suspect]
     Indication: TYPE 2 DIABETES MELLITUS
     Dosage: 50 MG/DAILY/PO : 100 MG/DAILY/PO
     Route: 048
     Dates: start: 20090201, end: 20090101
  2. JANUVIA [Suspect]
     Indication: TYPE 2 DIABETES MELLITUS
     Dosage: 50 MG/DAILY/PO : 100 MG/DAILY/PO
     Route: 048
     Dates: start: 20090101
  3. METFORMIN [Concomitant]

REACTIONS (5)
  - DYSPHAGIA [None]
  - DYSPHONIA [None]
  - HYPERHIDROSIS [None]
  - NECK PAIN [None]
  - OROPHARYNGEAL PAIN [None]
